FAERS Safety Report 18235105 (Version 1)
Quarter: 2020Q3

REPORT INFORMATION
  Report Type: Spontaneous
  Country: US (occurrence: US)
  Receive Date: 20200904
  Receipt Date: 20200904
  Transmission Date: 20201103
  Serious: No
  Sender: FDA-Public Use
  Company Number: US-009507513-2009USA001299

PATIENT
  Sex: Female

DRUGS (5)
  1. LENVATINIB MESYLATE [Suspect]
     Active Substance: LENVATINIB MESYLATE
     Dosage: UNK
     Route: 048
     Dates: start: 20200605, end: 20200728
  2. LENVATINIB MESYLATE [Suspect]
     Active Substance: LENVATINIB MESYLATE
     Dosage: UNK
     Route: 048
     Dates: start: 20200804
  3. SYNTHROID [Concomitant]
     Active Substance: LEVOTHYROXINE SODIUM
     Dosage: 75 MG OF SYNTHROID FOR YEARS, NOW HER SYNTHROID IS CONSTANTLY BEING ADJUSTED EVERY FEW WEEKS
  4. KEYTRUDA [Suspect]
     Active Substance: PEMBROLIZUMAB
  5. COMPAZINE [Suspect]
     Active Substance: PROCHLORPERAZINE MALEATE

REACTIONS (8)
  - Inflammation [Recovering/Resolving]
  - Hyperkeratosis [Unknown]
  - Nausea [Recovering/Resolving]
  - Haemoptysis [Recovering/Resolving]
  - Palmar-plantar erythrodysaesthesia syndrome [Unknown]
  - Thyroid function test abnormal [Unknown]
  - Vision blurred [Unknown]
  - Hypertension [Recovering/Resolving]

NARRATIVE: CASE EVENT DATE: 2020
